FAERS Safety Report 9227353 (Version 1)
Quarter: 2013Q2

REPORT INFORMATION
  Report Type: Spontaneous
  Country: CA (occurrence: CA)
  Receive Date: 20130412
  Receipt Date: 20130412
  Transmission Date: 20140414
  Serious: Yes (Hospitalization)
  Sender: FDA-Public Use
  Company Number: PHHY2013CA035201

PATIENT
  Sex: Female

DRUGS (4)
  1. ACLASTA [Suspect]
     Indication: OSTEOPOROSIS
     Dosage: UNK
     Route: 042
     Dates: start: 20090527
  2. ACLASTA [Suspect]
     Dosage: UNK
     Route: 042
     Dates: start: 20100527
  3. ACLASTA [Suspect]
     Dosage: UNK
     Route: 042
     Dates: start: 20110526
  4. ACLASTA [Suspect]
     Dosage: UNK
     Route: 042
     Dates: start: 20120522

REACTIONS (1)
  - Depression [Unknown]
